FAERS Safety Report 12342096 (Version 1)
Quarter: 2016Q2

REPORT INFORMATION
  Report Type: Spontaneous
  Country: US (occurrence: US)
  Receive Date: 20160506
  Receipt Date: 20160506
  Transmission Date: 20160815
  Serious: No
  Sender: FDA-Public Use
  Company Number: US-ANACOR-2016ANA00007

PATIENT
  Age: 74 Year
  Sex: Female
  Weight: 52.15 kg

DRUGS (3)
  1. TRIAMCINOLONE / HCTZ [Concomitant]
     Dosage: UNK, 1X/DAY
  2. KERYDIN [Suspect]
     Active Substance: TAVABOROLE
     Dosage: UNK, ONCE
     Route: 061
     Dates: start: 20160109, end: 20160109
  3. PRAVASTATIN SODIUM. [Concomitant]
     Active Substance: PRAVASTATIN SODIUM
     Dosage: UNK, 1X/DAY

REACTIONS (2)
  - Application site erythema [Recovering/Resolving]
  - Application site pain [Recovering/Resolving]

NARRATIVE: CASE EVENT DATE: 20160110
